FAERS Safety Report 6739972-9 (Version None)
Quarter: 2010Q2

REPORT INFORMATION
  Report Type: 
  Country: None (occurrence: None)
  Receive Date: 20100525
  Receipt Date: 20100518
  Transmission Date: 20101027
  Serious: Yes (Death, Hospitalization)
  Sender: FDA-Public Use
  Company Number: BE-ELI_LILLY_AND_COMPANY-BE201005000779

PATIENT
  Sex: Male
  Weight: 63 kg

DRUGS (19)
  1. PEMETREXED [Suspect]
     Indication: HEAD AND NECK CANCER
     Dosage: 500 MG/M2, DAY 1 EVERY 21 DAYS
     Route: 042
     Dates: start: 20100317
  2. CETUXIMAB [Suspect]
     Indication: HEAD AND NECK CANCER
     Dosage: 400 MG/M2, DAY 1 CYCLE 1
     Route: 042
     Dates: start: 20100317
  3. CETUXIMAB [Suspect]
     Dosage: 250 MG/M2, WEEKLY (1/W)
     Route: 042
  4. CISPLATIN [Suspect]
     Indication: HEAD AND NECK CANCER
     Dosage: 75 MG/M2, DAY 1 EVERY 21 DAYS
     Route: 042
     Dates: start: 20100317
  5. DEXAMETHASONE [Concomitant]
     Indication: PROPHYLAXIS
     Dates: start: 20100316, end: 20100319
  6. DEXAMETHASONE [Concomitant]
     Dates: start: 20100427, end: 20100429
  7. PANTOPRAZOLE SODIUM [Concomitant]
     Dates: start: 20050309
  8. REDOMEX [Concomitant]
     Dates: start: 20091101
  9. OPTIVIT [Concomitant]
     Indication: PROPHYLAXIS
     Dates: start: 20090101
  10. DAFALGAN [Concomitant]
     Indication: PROPHYLAXIS
     Dates: start: 20090101
  11. FLAGYL [Concomitant]
     Dates: start: 20090709
  12. LORAZEPAM [Concomitant]
     Indication: PROPHYLAXIS
     Dates: start: 20100310, end: 20100311
  13. LORAZEPAM [Concomitant]
     Dates: start: 20100326, end: 20100326
  14. SOLU-MEDROL [Concomitant]
     Indication: PROPHYLAXIS
     Dates: start: 20100407, end: 20100407
  15. EMEND [Concomitant]
     Indication: PROPHYLAXIS
     Dates: start: 20100428, end: 20100430
  16. ZOFRAN [Concomitant]
     Indication: PROPHYLAXIS
     Dates: start: 20100428, end: 20100429
  17. TEMGESIC [Concomitant]
     Indication: PROPHYLAXIS
     Dates: start: 20100324
  18. AUGMENTIN '125' [Concomitant]
     Dates: start: 20100430
  19. SODIUM CHLORIDE [Concomitant]
     Indication: PROPHYLAXIS
     Dates: start: 20100428

REACTIONS (2)
  - DEATH [None]
  - DYSPNOEA [None]
